FAERS Safety Report 12205062 (Version 2)
Quarter: 2016Q2

REPORT INFORMATION
  Report Type: Spontaneous
  Country: None (occurrence: US)
  Receive Date: 20160323
  Receipt Date: 20160422
  Transmission Date: 20160815
  Serious: No
  Sender: FDA-Public Use
  Company Number: US-MATRIXX INITIATIVES, INC.-1049513

PATIENT
  Age: 59 Year
  Sex: Female

DRUGS (8)
  1. HUMALOG [Concomitant]
     Active Substance: INSULIN LISPRO
  2. ZICAM NOS [Suspect]
     Active Substance: ACETAMINOPHEN\CHLORPHENIRAMINE MALEATE\DEXTROMETHORPHAN HYDROBROMIDE\PHENYLEPHRINE HYDROCHLORIDE OR ACETAMINOPHEN\DEXTROMETHORPHAN HYDROBROMIDE\DOXYLAMINE SUCCINATE\PHENYLEPHRINE HYDROCHLORIDE
     Indication: NASOPHARYNGITIS
  3. KLOR-CON [Concomitant]
     Active Substance: POTASSIUM CHLORIDE
  4. ATENOLOL. [Concomitant]
     Active Substance: ATENOLOL
  5. METFORMIN [Concomitant]
     Active Substance: METFORMIN HYDROCHLORIDE
  6. UNSPECIFIED THYROID MEDICATION [Concomitant]
     Active Substance: UNSPECIFIED INGREDIENT
  7. LANTUS [Concomitant]
     Active Substance: INSULIN GLARGINE
  8. LASIX [Concomitant]
     Active Substance: FUROSEMIDE

REACTIONS (2)
  - Anosmia [Recovered/Resolved]
  - Ageusia [Recovered/Resolved]
